FAERS Safety Report 25299549 (Version 1)
Quarter: 2025Q2

REPORT INFORMATION
  Report Type: Spontaneous
  Country: US (occurrence: US)
  Receive Date: 20250512
  Receipt Date: 20250512
  Transmission Date: 20250716
  Serious: No
  Sender: NOVARTIS
  Company Number: US-002147023-NVSC2025US075647

PATIENT
  Age: 55 Year
  Sex: Male

DRUGS (1)
  1. COSENTYX [Suspect]
     Active Substance: SECUKINUMAB
     Indication: Product used for unknown indication
     Dosage: 150 MG, QW (150 MG/MLX2)
     Route: 065

REACTIONS (3)
  - Device leakage [Unknown]
  - Accidental exposure to product [Unknown]
  - Needle issue [Unknown]

NARRATIVE: CASE EVENT DATE: 20250506
